FAERS Safety Report 8923298 (Version 1)
Quarter: 2012Q4

REPORT INFORMATION
  Report Type: Report from Study
  Country: CA (occurrence: CA)
  Receive Date: 20121123
  Receipt Date: 20121123
  Transmission Date: 20130627
  Serious: Yes (Other)
  Sender: FDA-Public Use
  Company Number: CA-JNJFOC-20121107350

PATIENT
  Age: 65 Year
  Sex: Female
  Weight: 82 kg

DRUGS (11)
  1. REMICADE [Suspect]
     Indication: CROHN^S DISEASE
     Route: 042
     Dates: start: 20110113
  2. REMICADE [Suspect]
     Indication: CROHN^S DISEASE
     Route: 042
     Dates: start: 20121114
  3. TYLENOL NUMBER 3 [Concomitant]
     Route: 065
  4. ALTACE [Concomitant]
     Route: 065
  5. PENTASA [Concomitant]
     Route: 065
  6. WARFARIN [Concomitant]
     Route: 065
  7. LOSEC [Concomitant]
     Route: 065
  8. ENTEROCORT [Concomitant]
     Route: 065
  9. IMODIUM [Concomitant]
     Route: 065
  10. POTASSIUM [Concomitant]
     Route: 065
  11. ELAVIL [Concomitant]
     Route: 065

REACTIONS (4)
  - Cataract [Recovered/Resolved]
  - Muscle spasms [Recovering/Resolving]
  - Infusion related reaction [Recovering/Resolving]
  - Vital functions abnormal [Recovered/Resolved]
